FAERS Safety Report 7532363-2 (Version None)
Quarter: 2011Q2

REPORT INFORMATION
  Report Type: 
  Country: None (occurrence: None)
  Receive Date: 20110608
  Receipt Date: 20110603
  Transmission Date: 20111010
  Serious: Yes (Other)
  Sender: FDA-Public Use
  Company Number: US-PFIZER INC-2010006388

PATIENT
  Sex: Male

DRUGS (7)
  1. LISINOPRIL [Concomitant]
     Indication: HYPERTENSION
     Dosage: 10 MG, UNK
     Dates: start: 20000101
  2. HYDROCHLOROTHIAZIDE [Concomitant]
     Indication: BLOOD CHOLESTEROL
     Dosage: 25 MG, UNK
     Route: 048
     Dates: start: 20000101
  3. SIMVASTATIN [Concomitant]
     Indication: BLOOD CHOLESTEROL
     Dosage: 40 MG, UNK
     Dates: start: 20000101
  4. CHANTIX [Suspect]
     Indication: SMOKING CESSATION THERAPY
     Dosage: 1 MG, UNK
     Dates: start: 20071212, end: 20080102
  5. FOLIC ACID [Concomitant]
     Indication: HYPERTENSION
     Dosage: 400 MG, UNK
     Dates: start: 20000101
  6. VITAMIN B-12 [Concomitant]
     Indication: HYPERTENSION
     Dosage: 1000 MG, UNK
     Dates: start: 20000101
  7. CLARITIN [Concomitant]
     Indication: HYPERSENSITIVITY
     Dosage: 10 MG, UNK

REACTIONS (10)
  - SLEEP APNOEA SYNDROME [None]
  - SUICIDAL IDEATION [None]
  - DIABETES MELLITUS [None]
  - LOSS OF LIBIDO [None]
  - TREMOR [None]
  - ANXIETY [None]
  - WEIGHT INCREASED [None]
  - DEPRESSION [None]
  - CONFUSIONAL STATE [None]
  - LETHARGY [None]
